FAERS Safety Report 6629606-6 (Version None)
Quarter: 2010Q1

REPORT INFORMATION
  Report Type: 
  Country: None (occurrence: None)
  Receive Date: 20100311
  Receipt Date: 20100225
  Transmission Date: 20100710
  Serious: Yes (Hospitalization)
  Sender: FDA-Public Use
  Company Number: NL-ELI_LILLY_AND_COMPANY-NL201003000137

PATIENT
  Sex: Female

DRUGS (10)
  1. FORTEO [Suspect]
     Indication: OSTEOPOROSIS
     Dosage: UNK UNK, DAILY (1/D)
     Route: 058
     Dates: start: 20090609
  2. THEOLAIR [Concomitant]
     Dosage: 350 MG, 2/D
  3. SPIRONOLACTONE [Concomitant]
     Dosage: 25 MG, DAILY (1/D)
  4. EMCOR [Concomitant]
     Dosage: 5 MG, DAILY (1/D)
  5. AMLODIPINE [Concomitant]
     Dosage: 5 MG, DAILY (1/D)
  6. NEXIUM [Concomitant]
     Dosage: 40 MG, 2/D
  7. DIAZEPAM [Concomitant]
     Dosage: 10 MG, 3/D
  8. TEMAZEPAM [Concomitant]
     Dosage: 20 MG, DAILY (1/D)
  9. CARBASALAATCALCIUM [Concomitant]
     Dosage: 100 MG, DAILY (1/D)
  10. FOLIC ACID [Concomitant]
     Dosage: 0.5 MG, DAILY (1/D)

REACTIONS (10)
  - APHONIA [None]
  - BONE PAIN [None]
  - DYSPHONIA [None]
  - DYSPNOEA [None]
  - ERYTHEMA [None]
  - HEADACHE [None]
  - HYPERHIDROSIS [None]
  - PNEUMONITIS [None]
  - RASH [None]
  - SKIN LESION [None]
